FAERS Safety Report 6414989-2 (Version None)
Quarter: 2009Q4

REPORT INFORMATION
  Report Type: 
  Country: None (occurrence: None)
  Receive Date: 20091026
  Receipt Date: 20090803
  Transmission Date: 20100525
  Serious: No
  Sender: FDA-Public Use
  Company Number: US-ABBOTT-09P-163-0588850-00

PATIENT
  Sex: Female
  Weight: 52.21 kg

DRUGS (4)
  1. LUPRON DEPOT [Suspect]
     Indication: ENDOMETRIOSIS
     Route: 030
     Dates: start: 20090605
  2. XANAX [Concomitant]
     Indication: DRUG USE FOR UNKNOWN INDICATION
  3. FLONASE [Concomitant]
     Indication: DRUG USE FOR UNKNOWN INDICATION
  4. AYGESTIN [Concomitant]
     Indication: DRUG USE FOR UNKNOWN INDICATION

REACTIONS (8)
  - ABDOMINAL PAIN [None]
  - COELIAC DISEASE [None]
  - DIARRHOEA [None]
  - FATIGUE [None]
  - NAUSEA [None]
  - RASH [None]
  - VOMITING [None]
  - WEIGHT INCREASED [None]
